FAERS Safety Report 11487169 (Version 4)
Quarter: 2016Q1

REPORT INFORMATION
  Report Type: Spontaneous
  Country: US (occurrence: US)
  Receive Date: 20150910
  Receipt Date: 20160304
  Transmission Date: 20160525
  Serious: Yes (Other)
  Sender: FDA-Public Use
  Company Number: US-PFIZER INC-2015298391

PATIENT
  Age: 48 Year
  Sex: Female
  Weight: 61.23 kg

DRUGS (5)
  1. EFFEXOR XR [Suspect]
     Active Substance: VENLAFAXINE HYDROCHLORIDE
     Indication: DEPRESSION
     Dosage: 37.5 MG, UNK (FOR A WEEK)
     Route: 048
     Dates: start: 201508, end: 201508
  2. EFFEXOR XR [Suspect]
     Active Substance: VENLAFAXINE HYDROCHLORIDE
     Indication: MOOD SWINGS
     Dosage: 37.5 MG, ALTERNATE DAY (FOR A WEEK)
     Route: 048
     Dates: start: 201508, end: 20150902
  3. XANAX [Concomitant]
     Active Substance: ALPRAZOLAM
     Indication: ANXIETY
     Dosage: 0.5 MG, UNK
     Dates: start: 201301
  4. EFFEXOR XR [Suspect]
     Active Substance: VENLAFAXINE HYDROCHLORIDE
     Indication: MOOD ALTERED
     Dosage: 150 MG, 1X/DAY
     Route: 048
     Dates: start: 201306, end: 201508
  5. EFFEXOR XR [Suspect]
     Active Substance: VENLAFAXINE HYDROCHLORIDE
     Indication: ANGER
     Dosage: 75 MG, UNK (FOR A WEEK)
     Route: 048
     Dates: start: 201508, end: 201508

REACTIONS (22)
  - Vertigo [Unknown]
  - Drug withdrawal syndrome [Unknown]
  - Insomnia [Unknown]
  - Feeling abnormal [Unknown]
  - Blood cholesterol increased [Unknown]
  - Hypertension [Unknown]
  - Gastrointestinal disorder [Not Recovered/Not Resolved]
  - Paraesthesia [Not Recovered/Not Resolved]
  - Hypoaesthesia [Not Recovered/Not Resolved]
  - Depressed mood [Unknown]
  - Flat affect [Recovered/Resolved]
  - Libido decreased [Recovered/Resolved]
  - Serotonin syndrome [Unknown]
  - Dizziness [Not Recovered/Not Resolved]
  - Hyperacusis [Unknown]
  - Dysstasia [Unknown]
  - Nightmare [Recovered/Resolved]
  - Vomiting [Unknown]
  - Crying [Unknown]
  - Weight increased [Unknown]
  - Photophobia [Unknown]
  - Self esteem decreased [Not Recovered/Not Resolved]

NARRATIVE: CASE EVENT DATE: 201306
